FAERS Safety Report 4557486-1 (Version None)
Quarter: 2005Q1

REPORT INFORMATION
  Report Type: 
  Country: None (occurrence: None)
  Receive Date: 20050103
  Receipt Date: 20041007
  Transmission Date: 20050727
  Serious: Yes (Other)
  Sender: FDA-Public Use
  Company Number: 2004UW19140

PATIENT
  Age: 83 Year
  Sex: Female
  Weight: 100.6985 kg

DRUGS (12)
  1. CRESTOR [Suspect]
     Indication: HYPERLIPIDAEMIA
     Dosage: 10 MG DAILY PO
     Route: 048
     Dates: start: 20031113, end: 20040825
  2. LOPID [Concomitant]
  3. XANAX [Concomitant]
  4. TOPROL-XL [Concomitant]
  5. ZOLOFT [Concomitant]
  6. DIOVAN [Concomitant]
  7. SYNTHROID [Concomitant]
  8. NORVASC [Concomitant]
  9. AMATYL [Concomitant]
  10. DEMADEX [Concomitant]
  11. AVANDIA [Concomitant]
  12. LORTAB [Concomitant]

REACTIONS (3)
  - BLOOD CREATININE INCREASED [None]
  - CHROMATURIA [None]
  - RENAL FAILURE [None]
